FAERS Safety Report 5283199-7 (Version None)
Quarter: 2007Q2

REPORT INFORMATION
  Report Type: 
  Country: None (occurrence: None)
  Receive Date: 20070402
  Receipt Date: 20070320
  Transmission Date: 20071010
  Serious: Yes (Hospitalization)
  Sender: FDA-Public Use
  Company Number: FR-GLAXOSMITHKLINE-B0444406A

PATIENT
  Age: 31 Year
  Sex: Female

DRUGS (2)
  1. ZYBAN [Suspect]
     Route: 048
  2. ACETAMINOPHEN [Suspect]
     Route: 048

REACTIONS (12)
  - AGGRESSION [None]
  - BLOOD PRESSURE INCREASED [None]
  - CONFUSIONAL STATE [None]
  - DELIRIUM [None]
  - DYSARTHRIA [None]
  - HALLUCINATION [None]
  - INTENTIONAL OVERDOSE [None]
  - PARKINSONISM [None]
  - PSYCHOMOTOR HYPERACTIVITY [None]
  - SPEECH DISORDER [None]
  - TACHYCARDIA [None]
  - TREMOR [None]
